FAERS Safety Report 21920839 (Version 2)
Quarter: 2023Q1

REPORT INFORMATION
  Report Type: Report from Study
  Country: FR (occurrence: FR)
  Receive Date: 20230127
  Receipt Date: 20230216
  Transmission Date: 20230418
  Serious: Yes (Hospitalization)
  Sender: FDA-Public Use
  Company Number: FR-JNJFOC-20230150573

PATIENT
  Age: 63 Year
  Sex: Male
  Weight: 43 kg

DRUGS (5)
  1. TRABECTEDIN [Suspect]
     Active Substance: TRABECTEDIN
     Indication: Soft tissue sarcoma
     Route: 065
  2. LEVOTHYROXINE [Concomitant]
     Active Substance: LEVOTHYROXINE
  3. SKENAN [Concomitant]
     Active Substance: MORPHINE SULFATE
  4. MORPHINE SULFATE [Concomitant]
     Active Substance: MORPHINE SULFATE
  5. NEURONTIN [Concomitant]
     Active Substance: GABAPENTIN

REACTIONS (2)
  - Vasculitis [Not Recovered/Not Resolved]
  - General physical health deterioration [Not Recovered/Not Resolved]

NARRATIVE: CASE EVENT DATE: 20221220
